FAERS Safety Report 12259571 (Version 1)
Quarter: 2016Q2

REPORT INFORMATION
  Report Type: Spontaneous
  Country: US (occurrence: US)
  Receive Date: 20160412
  Receipt Date: 20160412
  Transmission Date: 20160815
  Serious: No
  Sender: FDA-Public Use
  Company Number: US-SA-2015SA120735

PATIENT
  Age: 81 Year
  Sex: Male

DRUGS (1)
  1. ALLEGRA ALLERGY [Suspect]
     Active Substance: FEXOFENADINE HYDROCHLORIDE
     Indication: SEASONAL ALLERGY
     Dosage: TAKEN TO 8_AUG-2015 OR 9-AUG-2015?START DATE  7-8 DAYS AGO
     Route: 048

REACTIONS (1)
  - Drug ineffective [Unknown]
